FAERS Safety Report 5676768-3 (Version None)
Quarter: 2008Q1

REPORT INFORMATION
  Report Type: 
  Country: None (occurrence: None)
  Receive Date: 20080318
  Receipt Date: 20080303
  Transmission Date: 20080703
  Serious: Yes (Death)
  Sender: FDA-Public Use
  Company Number: 2008000306

PATIENT
  Age: 55 Year
  Sex: Female

DRUGS (1)
  1. TARCEVA [Suspect]
     Indication: PANCREATIC CARCINOMA
     Dosage: (150 MG), ORAL
     Route: 048
     Dates: start: 20060615, end: 20070415

REACTIONS (3)
  - DIARRHOEA [None]
  - RASH [None]
  - SEPSIS [None]
